FAERS Safety Report 5119233-4 (Version None)
Quarter: 2006Q3

REPORT INFORMATION
  Report Type: 
  Country: None (occurrence: None)
  Receive Date: 20060929
  Receipt Date: 20060921
  Transmission Date: 20061208
  Serious: Yes (Death, Life-Threatening)
  Sender: FDA-Public Use
  Company Number: HQWYE720302AUG06

PATIENT
  Age: 67 Year
  Sex: Male
  Weight: 83.2 kg

DRUGS (32)
  1. MYLOTARG [Suspect]
     Indication: ACUTE MYELOID LEUKAEMIA
     Dosage: 18 MG 1X PER 1 DAY, INTRAVENOUS
     Route: 042
     Dates: start: 20051011, end: 20051011
  2. HYDROXYUREA [Concomitant]
  3. LORAZEPAM [Concomitant]
  4. ALLOPURINOL [Concomitant]
  5. TRAZODONE HCL [Concomitant]
  6. ATENOL (ATENOLOL) [Concomitant]
  7. VANCOMYCIN [Concomitant]
  8. DOCUSATE SODIUM (DOCUSATE SODIUM) [Concomitant]
  9. SENNA (SENNA) [Concomitant]
  10. PANTOPRAZOLE SODIUM [Concomitant]
  11. TAMSULOSIN HYDROCHLORIDE (TAMSULOSIN HYDROCHLORIDE) [Concomitant]
  12. ACETAMINOPHEN [Concomitant]
  13. NYSTATIN [Concomitant]
  14. SODIUM BICARBONATE IN PLASTIC CONTAINER [Concomitant]
  15. SODIUM CHLORIDE 0.9% [Concomitant]
  16. METRONIDAZOLE [Concomitant]
  17. ACYCLOVIR [Concomitant]
  18. DIGOXIN [Concomitant]
  19. FLUOXETINE HCL [Concomitant]
  20. FOLIC ACID [Concomitant]
  21. MULTIVITAMINS (ASCORBIC ACID/ERGOCALCIFEROL/FOLIC ACID/NICOTINAMIDE/PA [Concomitant]
  22. PIPERACILLIN SODIUM W/TAZOBACTAM SODIUM (PIPERACILLIN SODIUM/TAZOBACTA [Concomitant]
  23. IPRATROPIUM BROMIDE [Concomitant]
  24. POLYETHYLENE GLYCOL (MACROGOL) [Concomitant]
  25. ALBUTEROL [Concomitant]
  26. DIPHENHYDRAMINE HCL [Concomitant]
  27. HYDROCODONE BITARTRATE [Concomitant]
  28. MORPHINE [Concomitant]
  29. LASIX [Concomitant]
  30. ZOLPIDEM TARTRATE [Concomitant]
  31. MAGNESIUM SULFATE [Concomitant]
  32. SIMETHICONE (DIMETICONE, ACTIVATED) [Concomitant]

REACTIONS (10)
  - ACQUIRED DIAPHRAGMATIC EVENTRATION [None]
  - BLAST CELL COUNT INCREASED [None]
  - BLOOD SODIUM DECREASED [None]
  - DISEASE PROGRESSION [None]
  - FEBRILE NEUTROPENIA [None]
  - PLEURAL EFFUSION [None]
  - RENAL CYST [None]
  - RENAL FAILURE ACUTE [None]
  - SPINAL FUSION ACQUIRED [None]
  - VASCULAR CALCIFICATION [None]
